FAERS Safety Report 10234083 (Version 6)
Quarter: 2020Q3

REPORT INFORMATION
  Report Type: Spontaneous
  Country: IE (occurrence: IE)
  Receive Date: 20140612
  Receipt Date: 20200716
  Transmission Date: 20201102
  Serious: Yes (Hospitalization, Disabling, Congenital Anomaly, Other)
  Sender: FDA-Public Use
  Company Number: IE-ABBVIE-14P-229-1246597-00

PATIENT
  Age: 0 Year
  Sex: Male

DRUGS (2)
  1. EPILIM [Suspect]
     Active Substance: VALPROATE SODIUM
     Indication: MATERNAL EXPOSURE TIMING UNSPECIFIED
     Route: 064
  2. EPILIM [Suspect]
     Active Substance: VALPROATE SODIUM
     Indication: MATERNAL EXPOSURE TIMING UNSPECIFIED
     Route: 064

REACTIONS (15)
  - Low set ears [Not Recovered/Not Resolved]
  - Impulsive behaviour [Unknown]
  - Impaired quality of life [Unknown]
  - Foetal anticonvulsant syndrome [Not Recovered/Not Resolved]
  - Hypertrichosis [Not Recovered/Not Resolved]
  - Memory impairment [Unknown]
  - Speech disorder developmental [Not Recovered/Not Resolved]
  - Dysmorphism [Not Recovered/Not Resolved]
  - Anger [Unknown]
  - Autism spectrum disorder [Unknown]
  - Ankyloglossia congenital [Not Recovered/Not Resolved]
  - Social problem [Unknown]
  - Dyspraxia [Unknown]
  - Disinhibition [Unknown]
  - Foetal exposure during pregnancy [Unknown]

NARRATIVE: CASE EVENT DATE: 19950101
